FAERS Safety Report 5848459-7 (Version None)
Quarter: 2008Q3

REPORT INFORMATION
  Report Type: 
  Country: None (occurrence: None)
  Receive Date: 20080815
  Receipt Date: 20080815
  Transmission Date: 20090109
  Serious: No
  Sender: FDA-Public Use
  Company Number: None

PATIENT
  Sex: Male
  Weight: 85.2762 kg

DRUGS (5)
  1. LIPITOR [Suspect]
     Indication: HYPERLIPIDAEMIA
     Dosage: 10MG ONCE DAILY PO
     Route: 048
     Dates: start: 20071201, end: 20080401
  2. REYATAZ [Suspect]
     Indication: ACQUIRED IMMUNODEFICIENCY SYNDROME
     Dosage: 300 MG ONCE DAILY PO
     Route: 048
     Dates: start: 20041220
  3. VIREAD [Concomitant]
  4. NORVIR [Concomitant]
  5. PAXIL [Concomitant]

REACTIONS (1)
  - NEPHROLITHIASIS [None]
